FAERS Safety Report 12826159 (Version 1)
Quarter: 2016Q4

REPORT INFORMATION
  Report Type: Spontaneous
  Country: US (occurrence: US)
  Receive Date: 20161006
  Receipt Date: 20161006
  Transmission Date: 20170207
  Serious: No
  Sender: FDA-Public Use
  Company Number: US-JAZZ-2016-US-012526

PATIENT
  Sex: Male

DRUGS (26)
  1. MAGNESIUM OXIDE. [Concomitant]
     Active Substance: MAGNESIUM OXIDE
  2. XYREM [Suspect]
     Active Substance: SODIUM OXYBATE
     Dosage: 1.5 G, BID
     Route: 048
     Dates: start: 201005, end: 201007
  3. S-ADENOSYLMETHIONINE SULFATE P-TOLUENESULFONATE [Concomitant]
     Active Substance: ADEMETIONINE SULFATE TOSILATE
  4. PREMARIN [Concomitant]
     Active Substance: ESTROGENS, CONJUGATED
  5. PROGESTERONE. [Concomitant]
     Active Substance: PROGESTERONE
  6. ADRENAL [Concomitant]
     Active Substance: EPINEPHRINE
  7. XYREM [Suspect]
     Active Substance: SODIUM OXYBATE
     Dosage: 4.5 G, BID
     Route: 048
     Dates: start: 201102
  8. FISH OIL CONCENTRATE [Concomitant]
  9. TOPIRAMATE. [Concomitant]
     Active Substance: TOPIRAMATE
  10. XYREM [Suspect]
     Active Substance: SODIUM OXYBATE
     Indication: CATAPLEXY
     Dosage: DOSE ADJUSTMENTS
     Route: 048
     Dates: start: 200412, end: 200502
  11. XYREM [Suspect]
     Active Substance: SODIUM OXYBATE
     Dosage: 4.5 G, BID
     Route: 048
     Dates: start: 200502, end: 2005
  12. PROBIOTIC ACIDOPHILUS [Concomitant]
     Active Substance: LACTOBACILLUS ACIDOPHILUS
  13. DHEA [Concomitant]
     Active Substance: PRASTERONE
  14. XYREM [Suspect]
     Active Substance: SODIUM OXYBATE
     Indication: NARCOLEPSY
     Dosage: 2.25 G, BID
     Route: 048
     Dates: start: 200411, end: 200412
  15. CEPHALEXIN. [Concomitant]
     Active Substance: CEPHALEXIN
  16. ESTROGENS CONJUGATED [Concomitant]
     Active Substance: ESTROGENS, CONJUGATED
  17. NIACIN. [Concomitant]
     Active Substance: NIACIN
  18. RED YEAST RICE [Concomitant]
     Active Substance: DIETARY SUPPLEMENT
  19. TRYPTOPHAN [Concomitant]
     Active Substance: TRYPTOPHAN
  20. DEXILANT [Concomitant]
     Active Substance: DEXLANSOPRAZOLE
  21. CRANBERRY + VITAMIN C [Concomitant]
  22. PREGNENOLONE [Concomitant]
     Active Substance: PREGNENOLONE
  23. TESTOSTERONE. [Concomitant]
     Active Substance: TESTOSTERONE
  24. XYREM [Suspect]
     Active Substance: SODIUM OXYBATE
     Dosage: DOSE ADJUSTMENTS
     Route: 048
     Dates: start: 201007, end: 201102
  25. DANAZOL. [Concomitant]
     Active Substance: DANAZOL
  26. MIDRIN [Concomitant]
     Active Substance: ACETAMINOPHEN\DICHLORALPHENAZONE\ISOMETHEPTENE

REACTIONS (2)
  - Cough [Not Recovered/Not Resolved]
  - Exposure to allergen [Not Recovered/Not Resolved]
